FAERS Safety Report 7009423-8 (Version None)
Quarter: 2010Q3

REPORT INFORMATION
  Report Type: 
  Country: None (occurrence: None)
  Receive Date: 20100921
  Receipt Date: 20100906
  Transmission Date: 20110219
  Serious: Yes (Hospitalization, Other)
  Sender: FDA-Public Use
  Company Number: AUR-APL-2010-02221

PATIENT
  Age: 30 Year
  Sex: Male

DRUGS (3)
  1. MIRTAZAPINE [Suspect]
     Indication: MAJOR DEPRESSION
     Dosage: 15-30MG - DAILY -
  2. SERTRALINE HYDROCHLORIDE [Suspect]
     Indication: MAJOR DEPRESSION
     Dosage: 200 MG
  3. QUETIAPINE [Concomitant]

REACTIONS (14)
  - ABNORMAL BEHAVIOUR [None]
  - AGITATION [None]
  - COGNITIVE DISORDER [None]
  - DELIRIUM [None]
  - DRUG TOXICITY [None]
  - HYPERHIDROSIS [None]
  - MYDRIASIS [None]
  - MYOCLONUS [None]
  - POSTURING [None]
  - PSYCHOMOTOR RETARDATION [None]
  - PYREXIA [None]
  - SEROTONIN SYNDROME [None]
  - TACHYCARDIA [None]
  - TREMOR [None]
